FAERS Safety Report 8265610-2 (Version None)
Quarter: 2012Q2

REPORT INFORMATION
  Report Type: 
  Country: None (occurrence: None)
  Receive Date: 20120406
  Receipt Date: 20120330
  Transmission Date: 20120825
  Serious: Yes (Hospitalization, Other)
  Sender: FDA-Public Use
  Company Number: US-ACTELION-A-NJ2012-60088

PATIENT

DRUGS (11)
  1. PROTONIX [Concomitant]
  2. ALLOPURINOL [Concomitant]
  3. SENSIPAR [Concomitant]
  4. ZINC SULFATE [Concomitant]
  5. RENVELA [Concomitant]
  6. TRACLEER [Suspect]
     Indication: PULMONARY ARTERIAL HYPERTENSION
     Dosage: 125 MG, BID
     Route: 048
     Dates: start: 20111101
  7. ASCORBIC ACID [Concomitant]
  8. TRACLEER [Suspect]
     Dosage: 62.5 MG, BID
     Route: 048
     Dates: start: 20111014, end: 20111101
  9. NOVOLOG [Concomitant]
  10. MULTI-VITAMINS VITAFIT [Concomitant]
  11. PERCOCET [Concomitant]

REACTIONS (14)
  - FLUID OVERLOAD [None]
  - WOUND [None]
  - HAEMATOCRIT DECREASED [None]
  - POST PROCEDURAL COMPLICATION [None]
  - DECUBITUS ULCER [None]
  - RED BLOOD CELL COUNT DECREASED [None]
  - DYSPNOEA [None]
  - LEG AMPUTATION [None]
  - PYREXIA [None]
  - TRANSFUSION [None]
  - PULMONARY OEDEMA [None]
  - OEDEMA [None]
  - ANAEMIA [None]
  - HAEMOGLOBIN DECREASED [None]
